FAERS Safety Report 11048146 (Version 1)
Quarter: 2015Q2

REPORT INFORMATION
  Report Type: Spontaneous
  Country: IT (occurrence: None)
  Receive Date: 20150417
  Receipt Date: 20150417
  Transmission Date: 20150821
  Serious: Yes (Life-Threatening)
  Sender: FDA-Public Use
  Company Number: None

PATIENT
  Age: 44 Year
  Sex: Female
  Weight: 50 kg

DRUGS (8)
  1. DONEGAL [Concomitant]
  2. ZANTAC [Suspect]
     Active Substance: RANITIDINE HYDROCHLORIDE
     Indication: CHRONIC GASTRITIS
     Dosage: 150+150 TWICE DAILY TAKEN BY MOUTH??LIFE
     Route: 048
  3. ZANTAC [Suspect]
     Active Substance: RANITIDINE HYDROCHLORIDE
     Indication: GASTRITIS
     Dosage: 150+150 TWICE DAILY TAKEN BY MOUTH??LIFE
     Route: 048
  4. MINIAS [Concomitant]
     Active Substance: LORMETAZEPAM
  5. CARTIJOINT [Concomitant]
  6. DELORAZEPAM [Concomitant]
     Active Substance: DELORAZEPAM
  7. CONDRAL [Concomitant]
  8. DAFLON [Concomitant]
     Active Substance: DIOSMIN\HESPERIDIN

REACTIONS (1)
  - Chondropathy [None]

NARRATIVE: CASE EVENT DATE: 20150416
